FAERS Safety Report 4400544-2 (Version None)
Quarter: 2004Q3

REPORT INFORMATION
  Report Type: 
  Country: None (occurrence: None)
  Receive Date: 20040716
  Receipt Date: 20040716
  Transmission Date: 20050211
  Serious: No
  Sender: FDA-Public Use
  Company Number: None

PATIENT
  Age: 65 Year
  Sex: Male
  Weight: 53.6 kg

DRUGS (1)
  1. AUGMENTIN '250' [Suspect]

REACTIONS (1)
  - GLOSSITIS [None]
